FAERS Safety Report 15642970 (Version 2)
Quarter: 2018Q4

REPORT INFORMATION
  Report Type: Spontaneous
  Country: PH (occurrence: PH)
  Receive Date: 20181121
  Receipt Date: 20181127
  Transmission Date: 20190205
  Serious: Yes (Hospitalization, Other)
  Sender: FDA-Public Use
  Company Number: PH-ASTELLAS-2018US039389

PATIENT
  Age: 74 Year
  Sex: Male

DRUGS (4)
  1. LOSARTAN. [Concomitant]
     Active Substance: LOSARTAN
     Indication: HYPERTENSION
     Dosage: UNK UNK, UNKNOWN FREQ.
     Route: 065
  2. CALCIUM [Concomitant]
     Active Substance: CALCIUM
     Indication: PRODUCT USED FOR UNKNOWN INDICATION
     Dosage: UNK UNK, UNKNOWN FREQ.
     Route: 065
  3. XTANDI [Suspect]
     Active Substance: ENZALUTAMIDE
     Indication: PROSTATE CANCER
     Dosage: 160 MG (40MG X 4 CAPSULES), ONCE DAILY
     Route: 048
     Dates: start: 201708, end: 201808
  4. XTANDI [Suspect]
     Active Substance: ENZALUTAMIDE
     Dosage: 160 MG (40MG X 4 CAPSULES), ONCE DAILY
     Route: 048
     Dates: start: 20180904, end: 20181108

REACTIONS (6)
  - Face oedema [Recovering/Resolving]
  - Hypoaesthesia [Recovering/Resolving]
  - Hypersensitivity [Recovering/Resolving]
  - Malignant neoplasm progression [Not Recovered/Not Resolved]
  - Eye oedema [Recovering/Resolving]
  - Blindness [Unknown]

NARRATIVE: CASE EVENT DATE: 20180730
